FAERS Safety Report 24822582 (Version 1)
Quarter: 2025Q1

REPORT INFORMATION
  Report Type: Report from Study
  Country: US (occurrence: US)
  Receive Date: 20250109
  Receipt Date: 20250109
  Transmission Date: 20250409
  Serious: Yes (Hospitalization)
  Sender: ABBVIE
  Company Number: US-ABBVIE-5920622

PATIENT
  Age: 80 Year
  Sex: Male

DRUGS (1)
  1. IMBRUVICA [Suspect]
     Active Substance: IBRUTINIB
     Indication: Chronic lymphocytic leukaemia
     Dosage: FORM STRENGTH: 420 MILLIGRAM
     Route: 048
     Dates: start: 20220126

REACTIONS (9)
  - Haemorrhagic stroke [Recovering/Resolving]
  - Depression [Unknown]
  - Dysphagia [Not Recovered/Not Resolved]
  - Gait disturbance [Unknown]
  - Syncope [Unknown]
  - Anxiety [Unknown]
  - Cough [Recovering/Resolving]
  - Panic attack [Not Recovered/Not Resolved]
  - Frustration tolerance decreased [Unknown]

NARRATIVE: CASE EVENT DATE: 20240201
